FAERS Safety Report 15957525 (Version 1)
Quarter: 2019Q1

REPORT INFORMATION
  Report Type: Spontaneous
  Country: US (occurrence: US)
  Receive Date: 20190213
  Receipt Date: 20190213
  Transmission Date: 20190417
  Serious: Yes (Hospitalization)
  Sender: FDA-Public Use
  Company Number: US-VERTEX PHARMACEUTICALS-2019-001265

PATIENT
  Sex: Male

DRUGS (11)
  1. TOBI [Concomitant]
     Active Substance: TOBRAMYCIN
  2. CALCIUM [Concomitant]
     Active Substance: CALCIUM
  3. SYMDEKO [Suspect]
     Active Substance: IVACAFTOR\TEZACAFTOR
     Indication: CYSTIC FIBROSIS
     Dosage: UNK
     Route: 048
     Dates: start: 201803
  4. VITAMIN C [Concomitant]
     Active Substance: ASCORBIC ACID
  5. B COMPLETE                         /06817001/ [Concomitant]
  6. HYPERSAL [Concomitant]
  7. PULMOZYME [Concomitant]
     Active Substance: DORNASE ALFA
  8. CREON [Concomitant]
     Active Substance: PANCRELIPASE AMYLASE\PANCRELIPASE LIPASE\PANCRELIPASE PROTEASE
  9. ALBUTEROL SULFATE. [Concomitant]
     Active Substance: ALBUTEROL SULFATE
  10. IRON [Concomitant]
     Active Substance: IRON
  11. ERYTHROMYCIN BASE [Concomitant]
     Active Substance: ERYTHROMYCIN

REACTIONS (1)
  - Hospitalisation [Unknown]
